FAERS Safety Report 7062998-5 (Version None)
Quarter: 2010Q4

REPORT INFORMATION
  Report Type: 
  Country: None (occurrence: None)
  Receive Date: 20101026
  Receipt Date: 20100402
  Transmission Date: 20110411
  Serious: No
  Sender: FDA-Public Use
  Company Number: US-PFIZER INC-2010042571

PATIENT
  Sex: Female
  Weight: 63.492 kg

DRUGS (5)
  1. LIPITOR [Suspect]
     Indication: BLOOD CHOLESTEROL INCREASED
     Dosage: 10 MG, 1X/DAY
     Route: 048
     Dates: start: 20090401, end: 20090101
  2. LIPITOR [Suspect]
     Dosage: 10 MG, 1X/DAY
     Route: 048
     Dates: start: 20090101, end: 20100301
  3. LIPITOR [Suspect]
     Dosage: 5 MG, 1X/DAY
     Dates: start: 20100301
  4. MULTI-VITAMINS [Concomitant]
     Dosage: UNK
  5. CALCIUM [Concomitant]
     Dosage: UNK

REACTIONS (2)
  - ERYTHEMA [None]
  - NAUSEA [None]
